FAERS Safety Report 4565624-X (Version None)
Quarter: 2005Q1

REPORT INFORMATION
  Report Type: 
  Country: None (occurrence: None)
  Receive Date: 20050131
  Receipt Date: 20050120
  Transmission Date: 20050727
  Serious: Yes (Hospitalization)
  Sender: FDA-Public Use
  Company Number: CH-JNJFOC-20050104558

PATIENT
  Sex: Female
  Weight: 80 kg

DRUGS (7)
  1. RISPERDAL [Suspect]
     Route: 049
  2. MOLSIDOMIN MEPHA 8 [Concomitant]
     Route: 049
  3. ASPIRIN [Concomitant]
     Route: 049
  4. XENALON [Concomitant]
     Route: 049
  5. ACTOS [Concomitant]
     Route: 049
  6. OEDEMEX [Concomitant]
     Route: 049
  7. ZESTRIL [Concomitant]
     Route: 049

REACTIONS (3)
  - OEDEMA PERIPHERAL [None]
  - PULMONARY OEDEMA [None]
  - RENAL FAILURE [None]
